FAERS Safety Report 19727400 (Version 1)
Quarter: 2021Q3

REPORT INFORMATION
  Report Type: Report from Study
  Country: US (occurrence: US)
  Receive Date: 20210820
  Receipt Date: 20210820
  Transmission Date: 20211014
  Serious: Yes (Hospitalization, Other)
  Sender: FDA-Public Use
  Company Number: US-BIOVITRUM-2021US3231

PATIENT
  Age: 7 Year
  Sex: Male

DRUGS (3)
  1. KINERET [Suspect]
     Active Substance: ANAKINRA
     Indication: AUTOINFLAMMATORY DISEASE
     Route: 058
     Dates: start: 20210322
  2. KINERET [Suspect]
     Active Substance: ANAKINRA
     Dosage: 100 MG AT MORNING
     Route: 058
     Dates: start: 20210322
  3. KINERET [Suspect]
     Active Substance: ANAKINRA
     Route: 058
     Dates: start: 20210316

REACTIONS (4)
  - Anaemia [Unknown]
  - Pseudomonas infection [Unknown]
  - Blood potassium increased [Unknown]
  - Off label use [Not Recovered/Not Resolved]

NARRATIVE: CASE EVENT DATE: 20210316
